FAERS Safety Report 8455553-3 (Version None)
Quarter: 2012Q2

REPORT INFORMATION
  Report Type: 
  Country: None (occurrence: None)
  Receive Date: 20120621
  Receipt Date: 20120615
  Transmission Date: 20120825
  Serious: Yes (Hospitalization, Other)
  Sender: FDA-Public Use
  Company Number: RU-PFIZER INC-2012118451

PATIENT
  Age: 73 Year
  Sex: Female

DRUGS (4)
  1. QUINAPRIL HCL [Suspect]
     Indication: MYOCARDIAL ISCHAEMIA
  2. CARDIPIN - SLOW RELEASE [Concomitant]
     Dosage: 20 MG, 2X/DAY
  3. QUINAPRIL HCL [Suspect]
     Indication: HYPERTENSION
     Dosage: 20 MG, 1X/DAY
     Route: 048
     Dates: start: 20100601, end: 20100801
  4. CONCOR [Concomitant]
     Dosage: 10 MG, 1X/DAY

REACTIONS (14)
  - PULMONARY FIBROSIS [None]
  - CARDIAC HYPERTROPHY [None]
  - CEREBROVASCULAR ACCIDENT [None]
  - CONDITION AGGRAVATED [None]
  - RED BLOOD CELL COUNT DECREASED [None]
  - PULMONARY CONGESTION [None]
  - WHITE BLOOD CELLS URINE POSITIVE [None]
  - HAEMOGLOBIN INCREASED [None]
  - BLOOD GLUCOSE DECREASED [None]
  - MYOCARDIAL ISCHAEMIA [None]
  - ATRIAL FIBRILLATION [None]
  - RED BLOOD CELLS URINE POSITIVE [None]
  - ATRIOVENTRICULAR BLOCK [None]
  - WHITE BLOOD CELL COUNT DECREASED [None]
